FAERS Safety Report 4277026-4 (Version None)
Quarter: 2004Q1

REPORT INFORMATION
  Report Type: 
  Country: None (occurrence: None)
  Receive Date: 20040112
  Receipt Date: 20031230
  Transmission Date: 20041129
  Serious: Yes (Other)
  Sender: FDA-Public Use
  Company Number: 12452991

PATIENT
  Sex: Female

DRUGS (2)
  1. METHOTREXATE [Suspect]
     Indication: RHEUMATOID ARTHRITIS
     Dosage: 1 DOSAGE FORM, 1/1 WEEK IM
     Route: 030
     Dates: start: 19911201
  2. FOLIC ACID [Concomitant]

REACTIONS (3)
  - EMPYEMA [None]
  - HAEMOGLOBIN DECREASED [None]
  - SALMONELLOSIS [None]
